FAERS Safety Report 18149446 (Version 1)
Quarter: 2020Q3

REPORT INFORMATION
  Report Type: Spontaneous
  Country: US (occurrence: US)
  Receive Date: 20200813
  Receipt Date: 20200813
  Transmission Date: 20201103
  Serious: Yes (Other)
  Sender: FDA-Public Use
  Company Number: None

PATIENT
  Age: 40 Year
  Sex: Female
  Weight: 95.6 kg

DRUGS (15)
  1. LYOPHILIZED REMDESIVIR FOR INJECTION [Suspect]
     Active Substance: REMDESIVIR
     Indication: COVID-19
     Dosage: ?          OTHER FREQUENCY:ONCE;?
     Route: 040
     Dates: start: 20200809, end: 20200809
  2. TYLENOL 650 MG PO Q4H [Concomitant]
     Dates: start: 20200808, end: 20200810
  3. KCL 20 MEQ [Concomitant]
     Dates: start: 20200809, end: 20200809
  4. VENTOLIN [Concomitant]
     Active Substance: ALBUTEROL SULFATE
     Dates: start: 20200808
  5. ZINC SULFATE 220 MG DAILY [Concomitant]
     Dates: start: 20200809
  6. HUMALOG [Concomitant]
     Active Substance: INSULIN LISPRO
     Dates: start: 20200808
  7. ENOXAPARIN 40 MG Q12H [Concomitant]
     Dates: start: 20200809
  8. GUAIFENESIN/CODEINE 10 ML Q4H PRN [Concomitant]
     Dates: start: 20200808
  9. LANTUS 10 UNITS DAILY [Concomitant]
     Dates: start: 20200807
  10. KETOROLAC 10 MG [Concomitant]
     Dates: start: 20200807, end: 20200807
  11. VITAMIN C 500 MG BID [Concomitant]
     Dates: start: 20200808
  12. PSEUDOEPHEDRINE 60 MG Q4H PRN [Concomitant]
     Dates: start: 20200808
  13. MUCINEX 600 MG BID [Concomitant]
     Dates: start: 20200808
  14. DEXAMETHASONE 6 MG DAILY [Concomitant]
     Dates: start: 20200809
  15. KETOROLAC [Concomitant]
     Active Substance: KETOROLAC TROMETHAMINE
     Dates: start: 20200809

REACTIONS (2)
  - Alanine aminotransferase increased [None]
  - Aspartate aminotransferase increased [None]

NARRATIVE: CASE EVENT DATE: 20200810
